FAERS Safety Report 12759021 (Version 1)
Quarter: 2016Q3

REPORT INFORMATION
  Report Type: Spontaneous
  Country: US (occurrence: US)
  Receive Date: 20160916
  Receipt Date: 20160916
  Transmission Date: 20161109
  Serious: No
  Sender: FDA-Public Use
  Company Number: None

PATIENT
  Age: 68 Year
  Sex: Female

DRUGS (1)
  1. IBRANCE [Suspect]
     Active Substance: PALBOCICLIB
     Indication: PRODUCT USED FOR UNKNOWN INDICATION
     Dosage: 100 MG DAILY FOR 21 DAYS ON AND 7 PO
     Route: 048
     Dates: start: 20151201

REACTIONS (2)
  - Anaemia [None]
  - Blood count abnormal [None]

NARRATIVE: CASE EVENT DATE: 20160718
